FAERS Safety Report 16705935 (Version 1)
Quarter: 2019Q3

REPORT INFORMATION
  Report Type: Spontaneous
  Country: FR (occurrence: FR)
  Receive Date: 20190815
  Receipt Date: 20190815
  Transmission Date: 20191004
  Serious: Yes (Other)
  Sender: FDA-Public Use
  Company Number: FR-MYLANLABS-2019M1074946

PATIENT
  Age: 36 Year
  Sex: Female
  Weight: 67.6 kg

DRUGS (16)
  1. CLOFARABINE. [Suspect]
     Active Substance: CLOFARABINE
     Indication: ACUTE LYMPHOCYTIC LEUKAEMIA
     Dosage: UNK
     Route: 041
     Dates: start: 20190204, end: 20190209
  2. SUFENTANIL [Concomitant]
     Active Substance: SUFENTANIL
     Dosage: UNK
  3. MIDAZOLAM [Concomitant]
     Active Substance: MIDAZOLAM HYDROCHLORIDE
     Dosage: UNK
  4. CILASTATIN SODIUM [Concomitant]
     Active Substance: CILASTATIN SODIUM
     Dosage: UNK
  5. HYDROCORTISONE. [Concomitant]
     Active Substance: HYDROCORTISONE
     Dosage: UNK
  6. VORICONAZOLE. [Suspect]
     Active Substance: VORICONAZOLE
     Indication: BRONCHOPULMONARY ASPERGILLOSIS
     Dosage: UNK
     Route: 041
     Dates: start: 20190111, end: 20190211
  7. IMIPENEM MONOHYDRATE [Concomitant]
     Active Substance: IMIPENEM
     Dosage: UNK
  8. VALACICLOVIR [Concomitant]
     Active Substance: VALACYCLOVIR HYDROCHLORIDE
     Dosage: UNK
  9. LINEZOLIDE KABI [Suspect]
     Active Substance: LINEZOLID
     Indication: SEPTIC SHOCK
     Dosage: UNK
     Route: 041
     Dates: start: 20190210, end: 20190211
  10. CYTARABINE. [Suspect]
     Active Substance: CYTARABINE
     Indication: ACUTE LYMPHOCYTIC LEUKAEMIA
     Dosage: UNK
     Route: 041
     Dates: start: 20190204, end: 20190209
  11. AMBISOME [Suspect]
     Active Substance: AMPHOTERICIN B
     Indication: BRONCHOPULMONARY ASPERGILLOSIS
     Dosage: UNK
     Route: 041
     Dates: start: 20190211, end: 20190212
  12. INSULINE                           /01223401/ [Concomitant]
     Active Substance: INSULIN NOS
     Dosage: UNK
  13. DAPTOMYCINE [Concomitant]
     Active Substance: DAPTOMYCIN
     Dosage: UNK
  14. VANCOMYCINE SANDOZ [Suspect]
     Active Substance: VANCOMYCIN
     Indication: SEPTIC SHOCK
     Dosage: UNK
     Route: 041
     Dates: start: 20190107, end: 20190210
  15. ERYTHROCINE                        /00020905/ [Suspect]
     Active Substance: ERYTHROMYCIN LACTOBIONATE
     Indication: SEPTIC SHOCK
     Dosage: UNK
     Route: 041
     Dates: start: 20190209, end: 20190210
  16. ALBUMINE [Concomitant]
     Active Substance: ALBUMIN HUMAN
     Dosage: UNK

REACTIONS (1)
  - Hypertransaminasaemia [Recovered/Resolved]

NARRATIVE: CASE EVENT DATE: 20190212
